FAERS Safety Report 7406999 (Version 2)
Quarter: 2014Q1

REPORT INFORMATION
  Report Type: Spontaneous
  Country: US (occurrence: None)
  Receive Date: 20100513
  Receipt Date: 20140114
  Transmission Date: 20141002
  Serious: Yes (Other)
  Sender: FDA-Public Use
  Company Number: 2010S1002674

PATIENT
  Age: 43 Year
  Sex: Male
  Weight: 98.88 kg

DRUGS (1)
  1. FLEET PHOSPHO-SODA ORAL SALINE LAXATIVE, GINGER-LEMON FLAVOR (ORAL SOLUTION) [Suspect]
     Indication: COLONOSCOPY
     Route: 048

REACTIONS (2)
  - Renal impairment [None]
  - Glomerular filtration rate decreased [None]
